FAERS Safety Report 13503577 (Version 1)
Quarter: 2017Q2

REPORT INFORMATION
  Report Type: Spontaneous
  Country: US (occurrence: US)
  Receive Date: 20170502
  Receipt Date: 20170502
  Transmission Date: 20170830
  Serious: Yes (Hospitalization, Disabling)
  Sender: FDA-Public Use
  Company Number: None

PATIENT
  Age: 44 Year
  Sex: Female
  Weight: 74 kg

DRUGS (12)
  1. CLOZARIL [Suspect]
     Active Substance: CLOZAPINE
     Indication: BIPOLAR DISORDER
     Dosage: 400 MG 4 PILLS A DAY TWICE DAILY OR AT BEDTIME MOUTH
     Route: 048
     Dates: start: 201303
  2. PRILOSEC [Concomitant]
     Active Substance: OMEPRAZOLE MAGNESIUM
  3. LORACET 5 [Concomitant]
  4. ACID REFLUX [Concomitant]
  5. PROP-RNANOLOL [Concomitant]
  6. ALOPINE [Concomitant]
  7. CLOZARIL [Suspect]
     Active Substance: CLOZAPINE
     Indication: SCHIZOPHRENIA
     Dosage: 400 MG 4 PILLS A DAY TWICE DAILY OR AT BEDTIME MOUTH
     Route: 048
     Dates: start: 201303
  8. CLANAPAM [Concomitant]
  9. LEVIGUIN [Concomitant]
  10. AVORSTATIN [Concomitant]
  11. GABABINTIN [Concomitant]
  12. VITAMIN D [Concomitant]
     Active Substance: CHOLECALCIFEROL

REACTIONS (8)
  - Hypopnoea [None]
  - Restless legs syndrome [None]
  - Neuroleptic malignant syndrome [None]
  - Seizure [None]
  - Blindness transient [None]
  - Neuropathy peripheral [None]
  - Angina pectoris [None]
  - Chest pain [None]
